FAERS Safety Report 14930717 (Version 5)
Quarter: 2018Q3

REPORT INFORMATION
  Report Type: Spontaneous
  Country: US (occurrence: US)
  Receive Date: 20180523
  Receipt Date: 20180816
  Transmission Date: 20181010
  Serious: Yes (Other)
  Sender: FDA-Public Use
  Company Number: US-ASTRAZENECA-2018SE67573

PATIENT
  Age: 748 Month
  Sex: Female

DRUGS (6)
  1. TUDORZA PRESSAIR [Suspect]
     Active Substance: ACLIDINIUM BROMIDE
     Indication: EMPHYSEMA
     Route: 055
  2. PULMICORT TURBUHALER [Suspect]
     Active Substance: BUDESONIDE
     Dosage: 0.5 MG
     Route: 055
  3. BROXANA [Concomitant]
     Dosage: 50 MCG / 2 ML TWICE A DAY VIA NEBULIZER
     Route: 065
  4. PREDNISONE. [Concomitant]
     Active Substance: PREDNISONE
     Indication: DYSPNOEA
     Route: 048
  5. TUDORZA PRESSAIR [Suspect]
     Active Substance: ACLIDINIUM BROMIDE
     Indication: CHRONIC OBSTRUCTIVE PULMONARY DISEASE
     Route: 055
  6. ALBUTEROL SULFATE. [Concomitant]
     Active Substance: ALBUTEROL SULFATE

REACTIONS (5)
  - Cerebrovascular accident [Unknown]
  - Drug dose omission [Not Recovered/Not Resolved]
  - Intentional product misuse [Recovered/Resolved]
  - Device malfunction [Unknown]
  - Asthma [Not Recovered/Not Resolved]

NARRATIVE: CASE EVENT DATE: 201805
